FAERS Safety Report 4998405-3 (Version None)
Quarter: 2006Q2

REPORT INFORMATION
  Report Type: 
  Country: None (occurrence: None)
  Receive Date: 20060508
  Receipt Date: 20060427
  Transmission Date: 20061013
  Serious: Yes (Disabling)
  Sender: FDA-Public Use
  Company Number: CIP06000964

PATIENT
  Age: 49 Year
  Sex: Female
  Weight: 70 kg

DRUGS (6)
  1. ACTONEL [Suspect]
     Indication: OSTEOPOROSIS
     Dosage: SEE IMAGE
     Route: 048
     Dates: start: 20050101, end: 20051001
  2. ACTONEL [Suspect]
     Indication: OSTEOPOROSIS
     Dosage: SEE IMAGE
     Route: 048
     Dates: start: 20051201, end: 20051201
  3. LEVOTHYROXINE SODIUM [Concomitant]
  4. RECORMON (ERYTHROPOIETIN HUMAN) [Concomitant]
  5. CALCIMAGON (CALCIUM CARBONATE) [Concomitant]
  6. ACIDUM FOLICUM (FOLIC ACID) [Concomitant]

REACTIONS (2)
  - DIZZINESS [None]
  - MENIERE'S DISEASE [None]
